FAERS Safety Report 24543548 (Version 1)
Quarter: 2024Q4

REPORT INFORMATION
  Report Type: Spontaneous
  Country: US (occurrence: US)
  Receive Date: 20241024
  Receipt Date: 20241024
  Transmission Date: 20250114
  Serious: No
  Sender: RISING PHARMACEUTICALS
  Company Number: US-RISINGPHARMA-US-2024RISSPO00382

PATIENT

DRUGS (1)
  1. LAMOTRIGINE [Suspect]
     Active Substance: LAMOTRIGINE
     Indication: Product used for unknown indication
     Route: 065

REACTIONS (6)
  - Sleep disorder [Unknown]
  - Fatigue [Unknown]
  - Mood altered [Unknown]
  - Depressed mood [Unknown]
  - Therapeutic product effect decreased [Unknown]
  - Product quality issue [Unknown]
